FAERS Safety Report 11910811 (Version 5)
Quarter: 2016Q1

REPORT INFORMATION
  Report Type: Report from Study
  Country: US (occurrence: US)
  Receive Date: 20160112
  Receipt Date: 20160210
  Transmission Date: 20160526
  Serious: Yes (Death, Life-Threatening, Hospitalization)
  Sender: FDA-Public Use
  Company Number: US-ACTELION-A-NJ2015-125084

PATIENT
  Age: 59 Year
  Sex: Male

DRUGS (10)
  1. VELETRI [Suspect]
     Active Substance: EPOPROSTENOL
     Dosage: 11 NG/KG, PER MIN
     Route: 042
     Dates: start: 20150820
  2. TRACLEER [Suspect]
     Active Substance: BOSENTAN
     Indication: PULMONARY ARTERIAL HYPERTENSION
     Dosage: 125 MG, BID
     Route: 048
     Dates: start: 200903, end: 20160113
  3. LITHIUM. [Concomitant]
     Active Substance: LITHIUM
     Dosage: 150 MG, BID
     Route: 048
  4. METOLAZONE. [Suspect]
     Active Substance: METOLAZONE
     Indication: CARDIAC FAILURE
     Dosage: 5 MG, QAM
     Route: 048
  5. SPIRONOLACTONE. [Suspect]
     Active Substance: SPIRONOLACTONE
     Indication: PRODUCT USED FOR UNKNOWN INDICATION
     Dosage: 100 MG, QPM
     Route: 048
  6. VELETRI [Suspect]
     Active Substance: EPOPROSTENOL
     Indication: PULMONARY ARTERIAL HYPERTENSION
     Dosage: 15 NG/KG, PER MIN
     Route: 042
     Dates: start: 20150818, end: 20160112
  7. VENTAVIS [Suspect]
     Active Substance: ILOPROST
     Indication: PULMONARY ARTERIAL HYPERTENSION
     Dosage: 5 MCG, 6 TIMES DAILY
     Route: 055
     Dates: start: 20120702
  8. POTASSIUM CHLORIDE. [Concomitant]
     Active Substance: POTASSIUM CHLORIDE
     Dosage: 40 MG, BID
     Route: 048
  9. VIAGRA [Concomitant]
     Active Substance: SILDENAFIL CITRATE
     Dosage: 100 MG, TID
     Route: 048
  10. TORSEMIDE. [Concomitant]
     Active Substance: TORSEMIDE
     Indication: CARDIAC FAILURE
     Dosage: 80 MG, BID
     Route: 048

REACTIONS (17)
  - Pulmonary arterial hypertension [Fatal]
  - Multiple organ dysfunction syndrome [Fatal]
  - Cardiac failure [Recovered/Resolved]
  - Fatigue [Unknown]
  - Acute kidney injury [Recovered/Resolved]
  - Fluid overload [Recovered/Resolved]
  - Dyspnoea [Recovered/Resolved]
  - Syncope [Unknown]
  - Oedema peripheral [Unknown]
  - Hyponatraemia [Recovered/Resolved]
  - Acute respiratory failure [Unknown]
  - Oropharyngeal pain [Recovered/Resolved]
  - Hypoxia [Fatal]
  - Fluid retention [Recovered/Resolved]
  - Pneumothorax [Unknown]
  - Hyperkalaemia [Recovered/Resolved]
  - Urinary tract infection [Unknown]

NARRATIVE: CASE EVENT DATE: 20160113
